FAERS Safety Report 16562552 (Version 1)
Quarter: 2019Q3

REPORT INFORMATION
  Report Type: Spontaneous
  Country: EG (occurrence: EG)
  Receive Date: 20190711
  Receipt Date: 20190711
  Transmission Date: 20191004
  Serious: Yes (Hospitalization, Other)
  Sender: FDA-Public Use
  Company Number: EG-NOVOPROD-671515

PATIENT
  Age: 71 Year
  Sex: Female

DRUGS (3)
  1. MIXTARD 30 HM PENFILL [Suspect]
     Active Substance: INSULIN HUMAN
     Indication: DIABETES MELLITUS
     Dosage: 40 IU, QD(AM)
     Route: 058
  2. LORAZ [HYDROCHLOROTHIAZIDE;LOSARTAN] [Concomitant]
     Indication: HYPERTENSION
     Dosage: 1 TABLET BEFORE BREAKFAST
     Route: 048
  3. ELTROXIN [Concomitant]
     Active Substance: LEVOTHYROXINE
     Indication: HYPOTHYROIDISM
     Dosage: 1 TABLET BEFORE BREAKFAST
     Route: 048

REACTIONS (1)
  - Lower limb fracture [Unknown]
